FAERS Safety Report 21692777 (Version 3)
Quarter: 2023Q4

REPORT INFORMATION
  Report Type: Report from Study
  Country: US (occurrence: US)
  Receive Date: 20221207
  Receipt Date: 20231207
  Transmission Date: 20240110
  Serious: Yes (Hospitalization)
  Sender: FDA-Public Use
  Company Number: US-SA-SAC20221202001376

PATIENT
  Age: 25 Year
  Sex: Female

DRUGS (5)
  1. BELUMOSUDIL MESYLATE [Suspect]
     Active Substance: BELUMOSUDIL MESYLATE
     Indication: Chronic graft versus host disease
     Dosage: 200 MG, QD
     Route: 048
     Dates: start: 20221026
  2. TIZANIDINE HYDROCHLORIDE [Concomitant]
     Active Substance: TIZANIDINE HYDROCHLORIDE
     Dosage: 6MILLIGRAM TID
  3. LINZESS [Concomitant]
     Active Substance: LINACLOTIDE
     Dosage: LINZESS INCREASED FROM 145 MCG TO 290 MCG DAILY
  4. LEVOTHYROXINE SODIUM [Concomitant]
     Active Substance: LEVOTHYROXINE SODIUM
     Dosage: 50 MG QD
  5. CLOZAPINE [Concomitant]
     Active Substance: CLOZAPINE
     Dosage: 1 MG, TID

REACTIONS (11)
  - Chest discomfort [Unknown]
  - Depersonalisation/derealisation disorder [Unknown]
  - Psychotic disorder [Unknown]
  - Weight decreased [Unknown]
  - Affect lability [Not Recovered/Not Resolved]
  - Mobility decreased [Unknown]
  - Anxiety [Unknown]
  - Visual impairment [Unknown]
  - Gait disturbance [Unknown]
  - Arthralgia [Unknown]
  - Blood phosphorus decreased [Unknown]
